FAERS Safety Report 18991113 (Version 2)
Quarter: 2021Q1

REPORT INFORMATION
  Report Type: Report from Study
  Country: US (occurrence: US)
  Receive Date: 20210310
  Receipt Date: 20210330
  Transmission Date: 20210420
  Serious: No
  Sender: FDA-Public Use
  Company Number: NVSC2021US054505

PATIENT
  Sex: Male

DRUGS (1)
  1. ENTRESTO [Suspect]
     Active Substance: SACUBITRIL\VALSARTAN
     Indication: PRODUCT USED FOR UNKNOWN INDICATION
     Dosage: 0.5 DF, BID (24/26MG)
     Route: 048

REACTIONS (4)
  - Somnolence [Unknown]
  - Fatigue [Unknown]
  - Weight increased [Unknown]
  - Wrong technique in product usage process [Unknown]
